FAERS Safety Report 6136224-5 (Version None)
Quarter: 2009Q1

REPORT INFORMATION
  Report Type: 
  Country: None (occurrence: None)
  Receive Date: 20090330
  Receipt Date: 20090324
  Transmission Date: 20090719
  Serious: Yes (Hospitalization)
  Sender: FDA-Public Use
  Company Number: US-BIOGENIDEC-2008BI016817

PATIENT
  Age: 33 Year
  Sex: Female

DRUGS (2)
  1. TYSABRI [Suspect]
     Indication: MULTIPLE SCLEROSIS
     Route: 042
     Dates: start: 20071212
  2. CIPROFLOXACIN HCL [Concomitant]
     Indication: URINARY TRACT INFECTION

REACTIONS (7)
  - CHEST PAIN [None]
  - DYSPHAGIA [None]
  - OROPHARYNGEAL PAIN [None]
  - PAIN [None]
  - PRURITUS [None]
  - TONGUE DISORDER [None]
  - URINARY TRACT INFECTION [None]
